FAERS Safety Report 17919283 (Version 3)
Quarter: 2020Q4

REPORT INFORMATION
  Report Type: Report from Study
  Country: US (occurrence: US)
  Receive Date: 20200619
  Receipt Date: 20201128
  Transmission Date: 20210113
  Serious: No
  Sender: FDA-Public Use
  Company Number: NVSC2020US172279

PATIENT
  Sex: Female

DRUGS (1)
  1. COSENTYX [Suspect]
     Active Substance: SECUKINUMAB
     Indication: PSORIASIS
     Dosage: UNK
     Route: 065
     Dates: start: 20161115

REACTIONS (7)
  - Finger deformity [Unknown]
  - Nerve injury [Unknown]
  - Food poisoning [Unknown]
  - Joint dislocation [Unknown]
  - Weight decreased [Unknown]
  - Pain [Unknown]
  - Abdominal discomfort [Unknown]
